FAERS Safety Report 9069917 (Version 1)
Quarter: 2013Q1

REPORT INFORMATION
  Report Type: Report from Study
  Country: US (occurrence: US)
  Receive Date: 20130129
  Receipt Date: 20130129
  Transmission Date: 20140127
  Serious: No
  Sender: FDA-Public Use
  Company Number: US-ABBOTT-12P-163-0944062-00

PATIENT
  Age: 75 Year
  Sex: Female

DRUGS (8)
  1. HUMIRA 40 MG/0.8 ML PEN [Suspect]
     Indication: RHEUMATOID ARTHRITIS
     Dates: start: 20120502
  2. METHOTREXATE [Concomitant]
     Indication: PRODUCT USED FOR UNKNOWN INDICATION
     Dosage: 5 PILLS
  3. PREDNISONE [Concomitant]
     Indication: PRODUCT USED FOR UNKNOWN INDICATION
     Dosage: 5 DAYS A WEEK
  4. LISINOPRIL [Concomitant]
     Indication: BLOOD PRESSURE
  5. SYNTHROID [Concomitant]
     Indication: THYROID DISORDER
  6. FOLIC ACID [Concomitant]
     Indication: PRODUCT USED FOR UNKNOWN INDICATION
  7. OMEPRAZOLE [Concomitant]
     Indication: GASTRIC DISORDER
  8. UNKNOWN VITAMINS [Concomitant]
     Indication: FOLATE DEFICIENCY
     Dosage: MOST DAYS

REACTIONS (2)
  - Laceration [Recovering/Resolving]
  - Fall [Recovering/Resolving]
